FAERS Safety Report 9432431 (Version 6)
Quarter: 2021Q1

REPORT INFORMATION
  Report Type: Spontaneous
  Country: IT (occurrence: IT)
  Receive Date: 20130731
  Receipt Date: 20210224
  Transmission Date: 20210420
  Serious: Yes (Hospitalization)
  Sender: FDA-Public Use
  Company Number: IT-PFIZER INC-2013217097

PATIENT
  Age: 53 Year
  Sex: Female

DRUGS (4)
  1. PANTOPRAZOLE [Interacting]
     Active Substance: PANTOPRAZOLE
     Indication: ACUTE CORONARY SYNDROME
     Dosage: UNK
     Dates: start: 2012, end: 2012
  2. ATORVASTATIN CALCIUM. [Suspect]
     Active Substance: ATORVASTATIN CALCIUM
     Indication: ACUTE CORONARY SYNDROME
     Dosage: UNK
     Dates: start: 2012, end: 2012
  3. ACETYLSALICYLIC ACID [Suspect]
     Active Substance: ASPIRIN
     Indication: ACUTE CORONARY SYNDROME
     Dosage: UNK
     Dates: start: 2012, end: 2012
  4. CLOPIDOGREL [Interacting]
     Active Substance: CLOPIDOGREL BISULFATE
     Indication: ANTIPLATELET THERAPY
     Dosage: 75 MG DAILY
     Dates: start: 2012, end: 2012

REACTIONS (7)
  - Asthenia [Unknown]
  - Drug interaction [Unknown]
  - Urine abnormality [Unknown]
  - Treatment noncompliance [Unknown]
  - Drug-induced liver injury [Recovering/Resolving]
  - Arthralgia [Unknown]
  - Rash papular [Unknown]

NARRATIVE: CASE EVENT DATE: 2012
